FAERS Safety Report 5021257-2 (Version None)
Quarter: 2006Q2

REPORT INFORMATION
  Report Type: 
  Country: None (occurrence: None)
  Receive Date: 20060425
  Receipt Date: 20050318
  Transmission Date: 20061013
  Serious: Yes (Other)
  Sender: FDA-Public Use
  Company Number: WAES 0503USA03336

PATIENT
  Age: 5 Year
  Sex: Female
  Weight: 22.2263 kg

DRUGS (2)
  1. SINGULAIR [Suspect]
     Indication: ASTHMA
     Dosage: 4 MG DAILY PO
     Route: 048
     Dates: start: 20050101, end: 20050201
  2. ALBUTEROL SULFATE [Concomitant]

REACTIONS (1)
  - CONVULSION [None]
